FAERS Safety Report 5671572-4 (Version None)
Quarter: 2008Q1

REPORT INFORMATION
  Report Type: 
  Country: None (occurrence: None)
  Receive Date: 20080313
  Receipt Date: 20080226
  Transmission Date: 20080703
  Serious: Yes (Death)
  Sender: FDA-Public Use
  Company Number: 2008JP000919

PATIENT
  Age: 69 Year
  Sex: Female
  Weight: 53 kg

DRUGS (14)
  1. TACROLIMUS [Suspect]
     Indication: INTERSTITIAL LUNG DISEASE
     Dosage: 2 MG, BID, ORAL
     Route: 048
     Dates: start: 20080115, end: 20080212
  2. PREDONONINE (RPEDNISOLONE) TABLET [Suspect]
     Indication: INTERSTITIAL LUNG DISEASE
     Dosage: 55 MG, D, ORAL; 50 MG, /D, ORAL
     Route: 048
     Dates: start: 20080109, end: 20080114
  3. PREDONONINE (RPEDNISOLONE) TABLET [Suspect]
     Indication: INTERSTITIAL LUNG DISEASE
     Dosage: 55 MG, D, ORAL; 50 MG, /D, ORAL
     Route: 048
     Dates: start: 20080115, end: 20080212
  4. PREDONONINE (RPEDNISOLONE) TABLET [Suspect]
     Indication: INTERSTITIAL LUNG DISEASE
     Dosage: 55 MG, D, ORAL; 50 MG, /D, ORAL
     Route: 048
     Dates: start: 20080215
  5. ULCERLMIN (SUCRALFATE) FINE GRANULE [Concomitant]
  6. NEORAL [Suspect]
     Indication: INTERSTITIAL LUNG DISEASE
     Dosage: 75 MG, BID, ORAL
     Route: 048
     Dates: start: 20080212, end: 20080224
  7. SOL MEDROL (METHYLPREDNISOLONE) [Suspect]
     Indication: INTERSTITIAL LUNG DISEASE
     Dosage: 1 G, /D
     Dates: start: 20080212, end: 20080214
  8. SOL MEDROL (METHYLPREDNISOLONE) [Suspect]
     Indication: INTERSTITIAL LUNG DISEASE
     Dosage: 1 G, /D
     Dates: start: 20080219, end: 20080220
  9. SLOW-K [Concomitant]
  10. BAKTAR (SULFAMETHOXAZOLE, TRIMETHOPRIM) [Concomitant]
  11. MARZULENE (SODIUM GUALENATE) FINE GRANULE [Concomitant]
  12. BLOPRESS (CANDESARTAN CILEXETIL) TABLET [Concomitant]
  13. AMLODIN (AMLODIPINE BESILATE) TABLET [Concomitant]
  14. MORPHINE HCL ELIXIR [Concomitant]

REACTIONS (3)
  - CONDITION AGGRAVATED [None]
  - INTERSTITIAL LUNG DISEASE [None]
  - PNEUMONIA CYTOMEGALOVIRAL [None]
